FAERS Safety Report 24591450 (Version 1)
Quarter: 2024Q4

REPORT INFORMATION
  Report Type: Spontaneous
  Country: NL (occurrence: NL)
  Receive Date: 20241108
  Receipt Date: 20241108
  Transmission Date: 20250115
  Serious: Yes (Hospitalization, Other)
  Sender: JUBILANT
  Company Number: None

PATIENT
  Age: 42 Year
  Sex: Male
  Weight: 92 kg

DRUGS (7)
  1. OLANZAPINE [Suspect]
     Active Substance: OLANZAPINE
     Indication: Schizoaffective disorder
     Dosage: 20 MG, 2 TIMES PER DAY
     Dates: start: 20230827, end: 20240924
  2. FLURAZEPAM [Concomitant]
     Active Substance: FLURAZEPAM HYDROCHLORIDE
     Indication: Product used for unknown indication
     Dosage: 15 MG
  3. PANTOPRAZOLE [Concomitant]
     Active Substance: PANTOPRAZOLE
     Indication: Product used for unknown indication
     Dosage: 40 MG
  4. LORAZEPAM [Concomitant]
     Active Substance: LORAZEPAM
     Indication: Product used for unknown indication
     Dosage: 1 MG
  5. CLOBETASOL\SALICYLIC ACID [Concomitant]
     Active Substance: CLOBETASOL\SALICYLIC ACID
     Indication: Product used for unknown indication
     Dosage: 0,5/100 MG/G (MILLIGRAM PER GRAM)
  6. VALPROIC ACID [Concomitant]
     Active Substance: VALPROIC ACID
     Indication: Product used for unknown indication
     Dosage: GASTRO-RESISTANT TABLET 2 X 500 MG
  7. LEVOMEPROMAZINE [Concomitant]
     Active Substance: LEVOMEPROMAZINE
     Indication: Product used for unknown indication
     Dosage: TABLET, 2 X 25 MG

REACTIONS (1)
  - Priapism [Recovering/Resolving]
